FAERS Safety Report 13105816 (Version 2)
Quarter: 2017Q3

REPORT INFORMATION
  Report Type: Spontaneous
  Country: US (occurrence: US)
  Receive Date: 20170111
  Receipt Date: 20170712
  Transmission Date: 20171127
  Serious: No
  Sender: FDA-Public Use
  Company Number: US-ALKERMES INC.-ALK-2016-003494

PATIENT
  Age: 40 Year
  Sex: Male

DRUGS (1)
  1. ARISTADA [Suspect]
     Active Substance: ARIPIPRAZOLE LAUROXIL
     Indication: SCHIZOPHRENIA
     Dosage: 662 MG, QMO
     Route: 030
     Dates: start: 201602

REACTIONS (10)
  - Fatigue [Unknown]
  - Impaired self-care [Unknown]
  - Restlessness [Unknown]
  - Headache [Unknown]
  - Caffeine consumption [Recovering/Resolving]
  - Abnormal behaviour [Unknown]
  - Decreased appetite [Unknown]
  - Drug abuse [Unknown]
  - Tobacco abuse [Not Recovered/Not Resolved]
  - Alcohol abuse [Recovering/Resolving]

NARRATIVE: CASE EVENT DATE: 2016
